FAERS Safety Report 11914834 (Version 1)
Quarter: 2016Q1

REPORT INFORMATION
  Report Type: Spontaneous
  Country: GB (occurrence: GB)
  Receive Date: 20160113
  Receipt Date: 20160113
  Transmission Date: 20160526
  Serious: Yes (Other)
  Sender: FDA-Public Use
  Company Number: PHHY2016GB000754

PATIENT
  Age: 75 Year
  Sex: Female

DRUGS (2)
  1. WARFARIN [Suspect]
     Active Substance: WARFARIN
     Indication: DEEP VEIN THROMBOSIS
     Route: 065
  2. CINACALCET [Concomitant]
     Active Substance: CINACALCET
     Indication: HYPERPARATHYROIDISM
     Dosage: 180 MG/DAY
     Route: 065

REACTIONS (1)
  - Calciphylaxis [Recovering/Resolving]
